FAERS Safety Report 6684881-7 (Version None)
Quarter: 2010Q2

REPORT INFORMATION
  Report Type: 
  Country: None (occurrence: None)
  Receive Date: 20100416
  Receipt Date: 20100408
  Transmission Date: 20101027
  Serious: Yes (Disabling)
  Sender: FDA-Public Use
  Company Number: FR-SANOFI-AVENTIS-200313242FR

PATIENT
  Age: 22 Year
  Sex: Female
  Weight: 45 kg

DRUGS (4)
  1. TELITHROMYCIN [Suspect]
     Indication: BRONCHITIS
     Dosage: DOSE UNIT: 400 MG
     Route: 048
     Dates: start: 20030820, end: 20030823
  2. SOLUPRED [Concomitant]
     Route: 048
     Dates: start: 20030820, end: 20030824
  3. ALLERGENS NOS [Concomitant]
  4. MUCOMYST /USA/ [Concomitant]
     Route: 048
     Dates: start: 20030820, end: 20030824

REACTIONS (19)
  - ANGIOPATHY [None]
  - BONE PAIN [None]
  - BURNING SENSATION [None]
  - EAR PAIN [None]
  - GLOSSODYNIA [None]
  - HYPERSENSITIVITY [None]
  - HYPOAESTHESIA [None]
  - MEDICATION ERROR [None]
  - MENTAL DISORDER [None]
  - MUSCLE SPASMS [None]
  - MYALGIA [None]
  - OROPHARYNGEAL PAIN [None]
  - PARAESTHESIA [None]
  - PRURITUS [None]
  - SKIN BURNING SENSATION [None]
  - SKIN NODULE [None]
  - SWELLING FACE [None]
  - TOOTHACHE [None]
  - TRANSAMINASES INCREASED [None]
